FAERS Safety Report 9408421 (Version 1)
Quarter: 2013Q3

REPORT INFORMATION
  Report Type: Spontaneous
  Country: GB (occurrence: None)
  Receive Date: 20130716
  Receipt Date: 20130716
  Transmission Date: 20140515
  Serious: Yes (Disabling, Other)
  Sender: FDA-Public Use
  Company Number: 2013-2917

PATIENT
  Age: 57 Year
  Sex: Female

DRUGS (2)
  1. DYSPORT (BOTULINUM TOXIN TYPE A) (BOTULINUM TOXIN TYPE A) [Suspect]
     Indication: TORTICOLLIS
  2. GABAPENTIN (GABAPENTIN) [Concomitant]

REACTIONS (4)
  - Feeling of body temperature change [None]
  - Muscle tightness [None]
  - Myalgia [None]
  - Drug administration error [None]
